FAERS Safety Report 8211533-4 (Version None)
Quarter: 2012Q1

REPORT INFORMATION
  Report Type: 
  Country: None (occurrence: None)
  Receive Date: 20120315
  Receipt Date: 20120307
  Transmission Date: 20120608
  Serious: Yes (Hospitalization)
  Sender: FDA-Public Use
  Company Number: CO-ASTELLAS-2012US002523

PATIENT
  Sex: Female

DRUGS (3)
  1. PROGRAF [Suspect]
     Indication: TRANSPLANT
     Dosage: UNK
     Route: 065
     Dates: start: 20111130
  2. MYCOPHENOLATE MOFETIL (CELLCEPT) [Concomitant]
     Indication: TRANSPLANT
     Dosage: UNK
     Route: 065
  3. PREDNISONE TAB [Concomitant]
     Indication: TRANSPLANT
     Dosage: UNK
     Route: 065

REACTIONS (3)
  - DRUG INEFFECTIVE [None]
  - BLOOD CREATININE DECREASED [None]
  - TRANSPLANT REJECTION [None]
